FAERS Safety Report 15903613 (Version 1)
Quarter: 2019Q1

REPORT INFORMATION
  Report Type: Spontaneous
  Country: CZ (occurrence: CZ)
  Receive Date: 20190203
  Receipt Date: 20190203
  Transmission Date: 20190417
  Serious: Yes (Hospitalization, Other)
  Sender: FDA-Public Use
  Company Number: CZ-ACCORD-105207

PATIENT
  Age: 41 Year
  Sex: Female

DRUGS (3)
  1. LEVOTHYROXINE. [Suspect]
     Active Substance: LEVOTHYROXINE
     Indication: HYPOTHYROIDISM
     Dosage: UNK
     Route: 048
  2. AMOXICILLIN/CLAVULANIC ACID [Suspect]
     Active Substance: AMOXICILLIN\CLAVULANIC ACID
     Indication: SKIN ULCER
     Dosage: QD
     Route: 048
  3. DROSPIRENONE/ETHINYLESTRADIOL [Suspect]
     Active Substance: DROSPIRENONE\ETHINYL ESTRADIOL
     Indication: ORAL CONTRACEPTION
     Dosage: 3MG/20 MCG
     Route: 048

REACTIONS (8)
  - Pyoderma gangrenosum [Recovered/Resolved]
  - Drug ineffective [Unknown]
  - Cellulitis [None]
  - Cellulitis [Recovered/Resolved]
  - Protein urine present [None]
  - Vasculitis [None]
  - Skin necrosis [Recovered/Resolved]
  - Disease progression [Unknown]

NARRATIVE: CASE EVENT DATE: 201707
